FAERS Safety Report 26108964 (Version 1)
Quarter: 2025Q4

REPORT INFORMATION
  Report Type: Spontaneous
  Country: CA (occurrence: None)
  Receive Date: 20251128
  Receipt Date: 20251128
  Transmission Date: 20260117
  Serious: No
  Sender: FDA-CTU
  Company Number: None

PATIENT
  Age: 29 Year
  Sex: Female
  Weight: 54 kg

DRUGS (7)
  1. CARIPRAZINE HYDROCHLORIDE [Suspect]
     Active Substance: CARIPRAZINE HYDROCHLORIDE
  2. NICOTINE [Suspect]
     Active Substance: NICOTINE
  3. Vraylar 1.5mg [Concomitant]
  4. lithium 750mg [Concomitant]
  5. YASMIN [Concomitant]
     Active Substance: DROSPIRENONE\ETHINYL ESTRADIOL
  6. SEROQUEL [Concomitant]
     Active Substance: QUETIAPINE FUMARATE
  7. MULTI-VITAMIN [Concomitant]
     Active Substance: .ALPHA.-TOCOPHEROL ACETATE, DL-\ASCORBIC ACID\CYANOCOBALAMIN\FLUORIDE ION\FOLIC ACID\NIACIN\PYRIDOXI

REACTIONS (7)
  - Anhedonia [None]
  - Apathy [None]
  - Sedation [None]
  - Erythema [None]
  - Hyperhidrosis [None]
  - Peripheral coldness [None]
  - Peripheral coldness [None]

NARRATIVE: CASE EVENT DATE: 20251128
